FAERS Safety Report 19130536 (Version 2)
Quarter: 2021Q2

REPORT INFORMATION
  Report Type: Spontaneous
  Country: US (occurrence: US)
  Receive Date: 20210414
  Receipt Date: 20210422
  Transmission Date: 20210717
  Serious: Yes (Other)
  Sender: FDA-Public Use
  Company Number: US-AUROBINDO-AUR-APL-2021-015089

PATIENT
  Age: 9 Year
  Sex: Male
  Weight: 30.8 kg

DRUGS (2)
  1. GUANFACINE. [Suspect]
     Active Substance: GUANFACINE
     Indication: ATTENTION DEFICIT HYPERACTIVITY DISORDER
     Dosage: 1 MILLIGRAM, DAILY
     Route: 065
  2. METHYLPHENIDATE HYDROCHLORIDE. [Suspect]
     Active Substance: METHYLPHENIDATE HYDROCHLORIDE
     Indication: ATTENTION DEFICIT HYPERACTIVITY DISORDER
     Dosage: 27 MILLIGRAM, DAILY
     Route: 065

REACTIONS (9)
  - Bruxism [Recovered/Resolved]
  - Dyskinesia [Recovered/Resolved]
  - Hyperhidrosis [Recovered/Resolved]
  - Opisthotonus [Recovered/Resolved]
  - Oropharyngeal pain [Recovered/Resolved]
  - Muscle contractions involuntary [Recovered/Resolved]
  - Neck pain [Recovered/Resolved]
  - Neck injury [Recovered/Resolved]
  - Dystonia [Recovered/Resolved]
